FAERS Safety Report 19965454 (Version 6)
Quarter: 2025Q2

REPORT INFORMATION
  Report Type: Report from Study
  Country: CA (occurrence: CA)
  Receive Date: 20211018
  Receipt Date: 20250401
  Transmission Date: 20250716
  Serious: Yes (Other)
  Sender: TAKEDA
  Company Number: CA-TAKEDA-CA201738122

PATIENT
  Age: 64 Year
  Sex: Male

DRUGS (22)
  1. TEDUGLUTIDE [Suspect]
     Active Substance: TEDUGLUTIDE
     Indication: Short-bowel syndrome
     Dosage: 3.35 MILLIGRAM, QD
     Dates: start: 20160502, end: 201708
  2. TEDUGLUTIDE [Suspect]
     Active Substance: TEDUGLUTIDE
  3. TEDUGLUTIDE [Suspect]
     Active Substance: TEDUGLUTIDE
  4. TEDUGLUTIDE [Suspect]
     Active Substance: TEDUGLUTIDE
  5. SODIUM BICARBONATE [Concomitant]
     Active Substance: SODIUM BICARBONATE
     Indication: Supplementation therapy
     Dosage: 1 DOSAGE FORM, QD
     Dates: start: 2017
  6. ZINC [Concomitant]
     Active Substance: ZINC
     Indication: Supplementation therapy
     Dosage: 1 DOSAGE FORM, QD
     Dates: start: 2017
  7. LOPERAMIDE [Concomitant]
     Active Substance: LOPERAMIDE
     Indication: Pain
     Dosage: 4 MILLIGRAM, QID
     Dates: start: 2017
  8. ARIPIPRAZOLE [Concomitant]
     Active Substance: ARIPIPRAZOLE
     Indication: Mental disorder
     Dosage: 1 MILLIGRAM, QD
     Dates: start: 2017
  9. URSODIOL [Concomitant]
     Active Substance: URSODIOL
     Indication: Parenteral nutrition associated liver disease
     Dosage: 250 MILLIGRAM, BID
     Dates: start: 20160220
  10. MIRTAZAPINE [Concomitant]
     Active Substance: MIRTAZAPINE
     Indication: Decreased appetite
     Dosage: 30 MILLIGRAM, QD
     Dates: start: 20150630, end: 2017
  11. CODEINE [Concomitant]
     Active Substance: CODEINE
     Indication: Short-bowel syndrome
     Dosage: 15 MILLIGRAM, QD
     Dates: start: 20160224, end: 2017
  12. CODEINE [Concomitant]
     Active Substance: CODEINE
     Dosage: 15 MILLIGRAM, QID
  13. FISH OIL [Concomitant]
     Active Substance: FISH OIL
     Indication: Supplementation therapy
     Dosage: 1000 MILLIGRAM, BID
  14. VITAMIN D [Concomitant]
     Active Substance: VITAMIN D NOS
     Indication: Supplementation therapy
     Dosage: 5000 INTERNATIONAL UNIT, QD
  15. CALCIUM [Concomitant]
     Active Substance: CALCIUM
     Indication: Supplementation therapy
  16. MAGNESIUM [Concomitant]
     Active Substance: MAGNESIUM
     Indication: Supplementation therapy
  17. MAGNESIUM [Concomitant]
     Active Substance: MAGNESIUM
     Dosage: UNK UNK, QD
     Dates: start: 201704
  18. VITAMIN B3 [Concomitant]
     Active Substance: NIACIN
     Indication: Supplementation therapy
  19. VITAMIN B12 [Concomitant]
     Active Substance: CYANOCOBALAMIN
     Indication: Short-bowel syndrome
  20. Centrum forte [Concomitant]
     Indication: Supplementation therapy
     Dosage: UNK UNK, QD
  21. AMPICILLIN [Concomitant]
     Active Substance: AMPICILLIN
     Indication: Antibiotic prophylaxis
     Dosage: 2 GRAM, QID
     Dates: start: 20161210, end: 2017
  22. POTASSIUM [Concomitant]
     Active Substance: POTASSIUM
     Indication: Electrolyte substitution therapy
     Dosage: UNK UNK, QD
     Dates: start: 201704

REACTIONS (1)
  - Carcinoembryonic antigen increased [Recovered/Resolved]

NARRATIVE: CASE EVENT DATE: 20170404
